FAERS Safety Report 15576517 (Version 2)
Quarter: 2018Q4

REPORT INFORMATION
  Report Type: Spontaneous
  Country: PL (occurrence: PL)
  Receive Date: 20181101
  Receipt Date: 20181108
  Transmission Date: 20190205
  Serious: Yes (Hospitalization, Other)
  Sender: FDA-Public Use
  Company Number: PL-PFIZER INC-2018443808

PATIENT
  Age: 75 Year
  Sex: Female

DRUGS (2)
  1. DALACIN C [Suspect]
     Active Substance: CLINDAMYCIN PHOSPHATE
     Dosage: 300 MG, 2X/DAY
  2. DALACIN C [Suspect]
     Active Substance: CLINDAMYCIN PHOSPHATE
     Dosage: 300 MG, 3X/DAY

REACTIONS (2)
  - Pneumonia staphylococcal [Unknown]
  - Drug ineffective [Unknown]
